FAERS Safety Report 5264353-7 (Version None)
Quarter: 2007Q1

REPORT INFORMATION
  Report Type: 
  Country: None (occurrence: None)
  Receive Date: 20070309
  Receipt Date: 20070226
  Transmission Date: 20070707
  Serious: No
  Sender: FDA-Public Use
  Company Number: 2007-155083-NL

PATIENT
  Age: 35 Year
  Sex: Female

DRUGS (6)
  1. CHORIONIC GONADOTROPIN [Suspect]
     Indication: IN VITRO FERTILISATION
  2. PROGESTERONE [Suspect]
     Indication: IN VITRO FERTILISATION
     Dosage: 400 MG BID VAGINAL
     Route: 067
  3. FOLLITROPIN BETA [Suspect]
  4. PROPOFOL [Suspect]
     Indication: IN VITRO FERTILISATION
     Dosage: INTRAVENOUS (NOS)
     Route: 042
  5. LEUPROLIDE ACETATE [Suspect]
     Indication: IN VITRO FERTILISATION
     Dates: start: 20000601
  6. ALFENTANIL [Suspect]
     Indication: IN VITRO FERTILISATION
     Dosage: INTRAVENOUS (NOS)
     Route: 042

REACTIONS (5)
  - ABORTION INDUCED [None]
  - DRUG EXPOSURE BEFORE PREGNANCY [None]
  - RETAINED PRODUCTS OF CONCEPTION [None]
  - SEX CHROMOSOME ABNORMALITY [None]
  - VAGINAL HAEMORRHAGE [None]
